FAERS Safety Report 18110488 (Version 2)
Quarter: 2020Q3

REPORT INFORMATION
  Report Type: Spontaneous
  Country: IT (occurrence: IT)
  Receive Date: 20200804
  Receipt Date: 20200812
  Transmission Date: 20201103
  Serious: Yes (Other)
  Sender: FDA-Public Use
  Company Number: NVSC2020IT215825

PATIENT
  Age: 6 Decade
  Sex: Female

DRUGS (1)
  1. PREDNISONE. [Suspect]
     Active Substance: PREDNISONE
     Indication: IMMUNE-MEDIATED NEUROPATHY
     Dosage: 1 MG/KG, QD
     Route: 048
     Dates: start: 201703

REACTIONS (5)
  - Diplopia [Unknown]
  - Condition aggravated [Recovering/Resolving]
  - Immune-mediated neuropathy [Recovering/Resolving]
  - Ataxia [Recovering/Resolving]
  - Gait disturbance [Unknown]
